FAERS Safety Report 9968344 (Version 1)
Quarter: 2014Q1

REPORT INFORMATION
  Report Type: Report from Study
  Country: US (occurrence: US)
  Receive Date: 20140306
  Receipt Date: 20140306
  Transmission Date: 20141002
  Serious: No
  Sender: FDA-Public Use
  Company Number: US-ABBVIE-13P-163-1146428-00

PATIENT
  Age: 53 Year
  Sex: Female

DRUGS (7)
  1. HUMIRA [Suspect]
     Indication: PSORIASIS
     Dates: end: 201307
  2. HUMIRA [Suspect]
     Dates: start: 201307
  3. LANTUS INSULIN [Concomitant]
     Indication: DIABETES MELLITUS
     Dosage: 30 UNITS DAILY
  4. METFORMIN [Concomitant]
     Indication: DIABETES MELLITUS
  5. JANUVIA [Concomitant]
     Indication: DIABETES MELLITUS
     Dosage: 100 UNTIS DAILY
  6. LISINOPRIL [Concomitant]
     Indication: RENAL LITHIASIS PROPHYLAXIS
     Dosage: 5 MG DAILY
  7. ASPIRIN [Concomitant]
     Indication: MYOCARDIAL INFARCTION

REACTIONS (2)
  - Psoriasis [Not Recovered/Not Resolved]
  - Nasopharyngitis [Not Recovered/Not Resolved]
